FAERS Safety Report 5920455-0 (Version None)
Quarter: 2008Q4

REPORT INFORMATION
  Report Type: 
  Country: None (occurrence: None)
  Receive Date: 20081015
  Receipt Date: 20081015
  Transmission Date: 20090506
  Serious: Yes (Hospitalization)
  Sender: FDA-Public Use
  Company Number: None

PATIENT
  Age: 84 Year
  Sex: Male

DRUGS (2)
  1. SODIUM BICARBONATE [Suspect]
     Indication: NEPHROPATHY TOXIC
     Dosage: 154 MEQ IN D5W 1000ML IV
     Route: 042
     Dates: start: 20080609, end: 20080609
  2. SODIUM BICARBONATE [Suspect]
     Indication: PROPHYLAXIS
     Dosage: 154 MEQ IN D5W 1000ML IV
     Route: 042
     Dates: start: 20080609, end: 20080609

REACTIONS (13)
  - ACUTE PULMONARY OEDEMA [None]
  - COAGULOPATHY [None]
  - COMPUTERISED TOMOGRAM ABNORMAL [None]
  - COUGH [None]
  - DIASTOLIC DYSFUNCTION [None]
  - HYPERTENSIVE EMERGENCY [None]
  - HYPOXIA [None]
  - INTERNATIONAL NORMALISED RATIO INCREASED [None]
  - NASAL CONGESTION [None]
  - PLEURAL DISORDER [None]
  - PNEUMONIA [None]
  - RESPIRATORY DISTRESS [None]
  - TUBERCULOSIS [None]
